FAERS Safety Report 24678084 (Version 1)
Quarter: 2024Q4

REPORT INFORMATION
  Report Type: Spontaneous
  Country: KR (occurrence: KR)
  Receive Date: 20241129
  Receipt Date: 20241129
  Transmission Date: 20250115
  Serious: Yes (Hospitalization, Other)
  Sender: CELLTRION
  Company Number: KR-CELLTRION INC.-2024KR028470

PATIENT

DRUGS (79)
  1. VEGZELMA [Suspect]
     Active Substance: BEVACIZUMAB-ADCD
     Indication: Colorectal cancer metastatic
     Dosage: 415 MG, Q2WEEKS (WEIGHT AT THE TIME OF ADMINISTRATION: 83 KG)
     Route: 042
     Dates: start: 20240416
  2. VEGZELMA [Suspect]
     Active Substance: BEVACIZUMAB-ADCD
     Dosage: 415 MG, Q2WEEKS (WEIGHT AT THE TIME OF ADMINISTRATION: 83 KG)
     Route: 042
     Dates: start: 20240502
  3. VEGZELMA [Suspect]
     Active Substance: BEVACIZUMAB-ADCD
     Dosage: 390 MG, Q2WEEKS (WEIGHT AT THE TIME OF ADMINISTRATION: 78 KG)
     Route: 042
     Dates: start: 20240521
  4. VEGZELMA [Suspect]
     Active Substance: BEVACIZUMAB-ADCD
     Dosage: 390 MG, Q2WEEKS (WEIGHT AT THE TIME OF ADMINISTRATION: 78 KG)
     Route: 042
     Dates: start: 20240604
  5. VEGZELMA [Suspect]
     Active Substance: BEVACIZUMAB-ADCD
     Dosage: 390 MG, Q2WEEKS (WEIGHT AT THE TIME OF ADMINISTRATION: 78 KG)
     Route: 042
     Dates: start: 20240619
  6. VEGZELMA [Suspect]
     Active Substance: BEVACIZUMAB-ADCD
     Dosage: 380 MG, Q2WEEKS (WEIGHT AT THE TIME OF ADMINISTRATION: 76 KG)
     Route: 042
     Dates: start: 20240702
  7. VEGZELMA [Suspect]
     Active Substance: BEVACIZUMAB-ADCD
     Dosage: 380 MG, Q2WEEKS (WEIGHT AT THE TIME OF ADMINISTRATION: 76 KG)
     Route: 042
     Dates: start: 20240716
  8. VEGZELMA [Suspect]
     Active Substance: BEVACIZUMAB-ADCD
     Dosage: 360 MG, Q2WEEKS (WEIGHT AT THE TIME OF ADMINISTRATION: 72 KG)
     Route: 042
     Dates: start: 20240806
  9. VEGZELMA [Suspect]
     Active Substance: BEVACIZUMAB-ADCD
     Dosage: 360 MG, Q2WEEKS (WEIGHT AT THE TIME OF ADMINISTRATION: 72 KG)
     Route: 042
     Dates: start: 20240820
  10. VEGZELMA [Suspect]
     Active Substance: BEVACIZUMAB-ADCD
     Dosage: 345 MG, Q2WEEKS (WEIGHT AT THE TIME OF ADMINISTRATION: 69 KG)
     Route: 042
     Dates: start: 20240903
  11. VEGZELMA [Suspect]
     Active Substance: BEVACIZUMAB-ADCD
     Dosage: 345 MG, Q2WEEKS (WEIGHT AT THE TIME OF ADMINISTRATION: 69 KG)
     Route: 042
     Dates: start: 20240924
  12. VEGZELMA [Suspect]
     Active Substance: BEVACIZUMAB-ADCD
     Dosage: 340 MG, Q2WEEKS (WEIGHT AT THE TIME OF ADMINISTRATION: 68KG)
     Route: 042
     Dates: start: 20241024
  13. VEGZELMA [Suspect]
     Active Substance: BEVACIZUMAB-ADCD
     Dosage: 330MG, Q2WEEKS
     Route: 042
     Dates: start: 20241112
  14. FLUOROURACIL [Suspect]
     Active Substance: FLUOROURACIL
     Indication: Chemotherapy
     Dosage: UNK
     Dates: start: 20240416
  15. IRINOTECAN [Suspect]
     Active Substance: IRINOTECAN
     Indication: Chemotherapy
     Dosage: UNK
     Dates: start: 20240416
  16. LEUCOVORIN CALCIUM [Suspect]
     Active Substance: LEUCOVORIN CALCIUM
     Indication: Chemotherapy
     Dosage: UNK
     Dates: start: 20240416
  17. ATROPINE SULFATE DAEWON [Concomitant]
     Indication: Gastrointestinal disorder prophylaxis
     Dosage: 0.1 MG, TID
     Route: 042
     Dates: start: 20240416, end: 20241024
  18. EMEND (FOSAPREPITANT DIMEGLUMINE) [Concomitant]
     Active Substance: FOSAPREPITANT DIMEGLUMINE
     Indication: Gastrointestinal disorder prophylaxis
     Dosage: 1 ML, QD
     Route: 042
     Dates: start: 20240416, end: 20241024
  19. ALOXI [Concomitant]
     Active Substance: PALONOSETRON HYDROCHLORIDE
     Indication: Gastrointestinal disorder prophylaxis
     Dosage: 0.25 MG, QD
     Route: 042
     Dates: start: 20240416, end: 20241024
  20. JEIL DEXAMETHASONE [Concomitant]
     Indication: Gastrointestinal disorder prophylaxis
     Dosage: 5 MG, QD
     Route: 042
     Dates: start: 20240416
  21. HUONS HEPARIN SODIUM [Concomitant]
     Indication: Catheter management
     Dosage: 10 ML, QD
     Route: 042
     Dates: start: 20240418, end: 20241103
  22. MACPERAN [METOCLOPRAMIDE] [Concomitant]
     Indication: Gastrointestinal disorder prophylaxis
     Dosage: 1 DF, TID
     Route: 048
     Dates: start: 20240418, end: 20240820
  23. OXYCODONE HYDROCHLORIDE [Concomitant]
     Active Substance: OXYCODONE HYDROCHLORIDE
     Indication: Pain
     Dosage: 5 MG, TID
     Route: 048
     Dates: start: 20240424
  24. ACETYLCYSTEINE [Concomitant]
     Active Substance: ACETYLCYSTEINE
     Indication: Renal disorder prophylaxis
     Dosage: 200 MG, TID
     Route: 048
     Dates: start: 20240516, end: 20240702
  25. FENTADUR [Concomitant]
     Indication: Pain
     Dosage: 1 MCG, ONCE A WEEK
     Route: 062
     Dates: start: 20240516
  26. TAZOPERAN [Concomitant]
     Indication: Infection prophylaxis
     Dosage: 4.5 G, BID
     Route: 042
     Dates: start: 20240516
  27. DULACKHAN EASY [Concomitant]
     Indication: Constipation
     Dosage: 15 ML, TID
     Route: 048
     Dates: start: 20240516, end: 20241101
  28. HANA PETHIDINE HCL [Concomitant]
     Indication: Pain
     Dosage: 0.5 ML, QD
     Route: 042
     Dates: start: 20240520, end: 20240520
  29. GASTER [Concomitant]
     Active Substance: FAMOTIDINE
     Indication: Gastrointestinal disorder prophylaxis
     Dosage: 1 ML, QD
     Route: 042
     Dates: start: 20240517, end: 20240522
  30. TRANEXAMIC ACID [Concomitant]
     Active Substance: TRANEXAMIC ACID
     Indication: Haemorrhage prophylaxis
     Dosage: 5 ML, QD
     Route: 042
     Dates: start: 20240517, end: 20241026
  31. DULCOLAX-S [Concomitant]
     Indication: Constipation
     Dosage: 1 TAB, QD
     Route: 048
     Dates: start: 20240517, end: 20240920
  32. DONGKOO CEFPODOXIME PROXETIL [Concomitant]
     Indication: Haematuria
     Dosage: 100 MG, QD
     Route: 048
     Dates: start: 20240820
  33. MAGNESIUM SULFATE [Concomitant]
     Active Substance: MAGNESIUM SULFATE
     Indication: Electrolyte substitution therapy
     Dosage: 20 ML, BID
     Route: 042
     Dates: start: 20241021, end: 20241024
  34. FOTAGEL [Concomitant]
     Indication: Diarrhoea
     Dosage: 20 ML, QD
     Route: 048
     Dates: start: 20240806, end: 20241103
  35. FEXUCLUE [Concomitant]
     Indication: Gastrointestinal disorder prophylaxis
     Dosage: 40 MG, TID
     Route: 048
     Dates: start: 20240820
  36. FEBUXOSTAT [Concomitant]
     Active Substance: FEBUXOSTAT
     Indication: Electrolyte substitution therapy
     Dosage: 40 MG, TID
     Route: 048
     Dates: start: 20241031
  37. TAPOCIN [Concomitant]
     Indication: Infection prophylaxis
     Dosage: 400 ML, QD
     Route: 042
     Dates: start: 20241015, end: 20241022
  38. TAMIPOOL [ASCORBIC ACID;BIOTIN;CYANOCOBALAMIN;DEXPANTHENOL;ERGOCALCIFE [Concomitant]
     Indication: Nutritional supplementation
     Dosage: 1 ML, QD
     Route: 042
     Dates: start: 20241016
  39. LEUCOVORIN CALCIUM [Concomitant]
     Active Substance: LEUCOVORIN CALCIUM
     Indication: Chemotherapy
     Dosage: 10 ML, QD
     Route: 042
     Dates: start: 20240820
  40. IRINOTECAN [Concomitant]
     Active Substance: IRINOTECAN
     Indication: Chemotherapy
     Dosage: 2 ML, QD
     Route: 042
     Dates: start: 20240820
  41. FLUOROURACIL [Concomitant]
     Active Substance: FLUOROURACIL
     Indication: Chemotherapy
     Dosage: 20 ML, QD
     Route: 042
     Dates: start: 20240820
  42. AMINO ACIDS\DEXTROSE\ELECTROLYTES NOS\SOYBEAN OIL\VITAMINS [Concomitant]
     Active Substance: AMINO ACIDS\DEXTROSE\ELECTROLYTES NOS\SOYBEAN OIL\VITAMINS
     Indication: Nutritional supplementation
     Dosage: 1085 ML, QD
     Route: 042
     Dates: start: 20241106
  43. OLIMEL E [Concomitant]
     Active Substance: AMINO ACIDS\DEXTROSE\ELECTROLYTES NOS\SOYBEAN OIL
     Indication: Nutritional supplementation
     Dosage: 1000 ML, QD
     Route: 042
     Dates: start: 20241016, end: 20241102
  44. MOSAPRIDE CITRATE [Concomitant]
     Active Substance: MOSAPRIDE CITRATE
     Indication: Gastrointestinal disorder prophylaxis
     Dosage: 5 MG, BID
     Route: 048
     Dates: start: 20241026
  45. LOPERAMIDE HYDROCHLORIDE [Concomitant]
     Active Substance: LOPERAMIDE HYDROCHLORIDE
     Indication: Diarrhoea
     Dosage: 1 CAP, QD
     Route: 048
     Dates: start: 20241108
  46. NORZYME [Concomitant]
     Indication: Gastrointestinal disorder prophylaxis
     Dosage: 1 DF, QD
     Route: 048
     Dates: start: 20241110, end: 20241110
  47. DAIHAN LIDOCAINE HCL [Concomitant]
     Indication: Anaesthesia
     Dosage: 5 ML, QD
     Route: 042
     Dates: start: 20241023, end: 20241023
  48. DAIHAN ISOTONIC SODIUM CHLORIDE [Concomitant]
     Indication: Medication dilution
     Dosage: 150 ML, TID
     Route: 042
     Dates: start: 20240416, end: 20241024
  49. DONG A GASTER [Concomitant]
     Indication: Gastrointestinal disorder prophylaxis
     Dosage: 40 MG, QD
     Route: 048
     Dates: start: 20241103
  50. PREDNICARBATE [Interacting]
     Active Substance: PREDNICARBATE
     Indication: Prophylaxis
     Dosage: 60 G, QD
     Route: 061
     Dates: start: 20240604, end: 20240625
  51. REMIVA [Concomitant]
     Indication: Anaesthesia
     Dosage: 1 ML, BID
     Route: 042
     Dates: start: 20241023, end: 20241023
  52. ROCARON [Concomitant]
     Indication: Anaesthesia
     Dosage: 5 ML, BID
     Route: 042
     Dates: start: 20241023, end: 20241023
  53. MACPERAN [METOCLOPRAMIDE HYDROCHLORIDE] [Concomitant]
     Indication: Gastrointestinal disorder prophylaxis
     Dosage: 2 ML, BID
     Route: 042
     Dates: start: 20241031
  54. YUHAN MEROPEN [Concomitant]
     Indication: Infection prophylaxis
     Dosage: 500 MG, QD
     Route: 042
     Dates: start: 20241015, end: 20241017
  55. BESZYME [Concomitant]
     Indication: Gastrointestinal disorder prophylaxis
     Dosage: 1 TAB, QD
     Route: 048
     Dates: start: 20241024, end: 20241024
  56. IBUPROFEN [Concomitant]
     Active Substance: IBUPROFEN
     Indication: Pain
     Dosage: 200 MG, QD
     Route: 048
     Dates: start: 20240924, end: 20241001
  57. BC MORPHINE SULFATE [Concomitant]
     Indication: Pain
     Dosage: 5 ML
     Route: 042
     Dates: start: 20240516
  58. ACETPHEN PREMIX [Concomitant]
     Indication: Pain
     Dosage: 100 ML, QD
     Route: 042
     Dates: start: 20241023, end: 20241023
  59. OXYCODONE HYDROCHLORIDE [Concomitant]
     Active Substance: OXYCODONE HYDROCHLORIDE
     Indication: Pain
     Dosage: 10 MG, TID
     Route: 048
     Dates: start: 20241026
  60. IOBRIX [Concomitant]
     Indication: Scan with contrast
     Dosage: 30 ML, QD (IOBRIX 240)
     Route: 042
     Dates: start: 20241023, end: 20241023
  61. IOBRIX [Concomitant]
     Indication: Scan with contrast
     Dosage: 100 ML, QD (IOBRIX 270)
     Route: 042
     Dates: start: 20240520, end: 20240520
  62. IOBRIX [Concomitant]
     Indication: Scan with contrast
     Dosage: 40 ML, QD (IOBRIX 300)
     Route: 042
     Dates: start: 20240516, end: 20241015
  63. INNO.N 0.9% SODIUM CHLORIDE [Concomitant]
     Indication: Medication dilution
     Dosage: 100 ML, TID
     Route: 042
     Dates: start: 20240416
  64. INNO.N 5% DEXTROSE [Concomitant]
     Indication: Medication dilution
     Dosage: 100 ML, TID
     Route: 042
     Dates: start: 20240416
  65. INNO.N 0.9% SODIUM CHLORIDE [Concomitant]
     Indication: Dehydration
     Dosage: 1000 ML, QD
     Route: 042
     Dates: start: 20240517, end: 20241023
  66. INNO.N 0.9% SODIUM CHLORIDE [Concomitant]
     Indication: Dehydration
     Dosage: 500 ML, QD
     Route: 042
     Dates: start: 20240516, end: 20240924
  67. INNO.N 5% DEXTROSE [Concomitant]
     Indication: Dehydration
     Dosage: 1000 ML, QD
     Route: 042
     Dates: start: 20240416, end: 20241025
  68. INSTILLAGEL [Concomitant]
     Active Substance: CHLORHEXIDINE GLUCONATE\LIDOCAINE HYDROCHLORIDE
     Indication: Catheter placement
     Dosage: 11 ML, QD
     Route: 061
     Dates: start: 20240806, end: 20240823
  69. JEIL LIDOCAINE [Concomitant]
     Indication: Nephrostomy
     Dosage: 1 ML, QD
     Route: 030
     Dates: start: 20240516, end: 20241015
  70. JW 0.45% SODIUM CHLORIDE [Concomitant]
     Indication: Dehydration
     Dosage: 500 ML, QD
     Route: 042
     Dates: start: 20241018, end: 20241024
  71. JW 0.45% SODIUM CHLORIDE [Concomitant]
     Indication: Dehydration
     Dosage: QD
     Route: 042
     Dates: start: 20241016, end: 20241017
  72. CALCIUM POLYSTYRENE SULFONATE [Concomitant]
     Active Substance: CALCIUM POLYSTYRENE SULFONATE
     Indication: Electrolyte substitution therapy
     Dosage: 1 MG, QD
     Route: 048
     Dates: start: 20241015, end: 20241015
  73. TRAMADOL HYDROCHLORIDE [Concomitant]
     Active Substance: TRAMADOL HYDROCHLORIDE
     Indication: Pain
     Dosage: 1 ML, QD
     Route: 042
     Dates: start: 20240520, end: 20240520
  74. TRISONE KIT [Concomitant]
     Indication: Infection prophylaxis
     Dosage: 1 ML, QD
     Route: 042
     Dates: start: 20241022, end: 20241025
  75. PENIRAMIN [Concomitant]
     Indication: Prophylaxis
     Dosage: 1 ML, QD
     Route: 042
     Dates: start: 20240516, end: 20240924
  76. FENTADUR [Concomitant]
     Indication: Pain
     Dosage: 50 MCG/H, ONCE A WEEK
     Route: 062
     Dates: start: 20240820
  77. FRESOFOL MCT [Concomitant]
     Indication: Anaesthesia
     Dosage: 15 ML, QD
     Route: 042
     Dates: start: 20241023, end: 20241023
  78. PROFA [Concomitant]
     Indication: Pain
     Dosage: 100 ML, QD
     Route: 042
     Dates: start: 20241015, end: 20241015
  79. HANA FENTANYL CITRATE [Concomitant]
     Indication: Anaesthesia
     Dosage: 10 ML, QD
     Route: 042
     Dates: start: 20241023, end: 20241023

REACTIONS (3)
  - Acute kidney injury [Recovered/Resolved]
  - Hydronephrosis [Recovered/Resolved]
  - Ileus [Recovered/Resolved]

NARRATIVE: CASE EVENT DATE: 20240516
